FAERS Safety Report 15746929 (Version 2)
Quarter: 2019Q1

REPORT INFORMATION
  Report Type: Spontaneous
  Country: DE (occurrence: DE)
  Receive Date: 20181220
  Receipt Date: 20190117
  Transmission Date: 20190417
  Serious: Yes (Hospitalization)
  Sender: FDA-Public Use
  Company Number: PHHY2018DE121748

PATIENT
  Age: 32 Year
  Sex: Male

DRUGS (2)
  1. COSENTYX [Suspect]
     Active Substance: SECUKINUMAB
     Indication: PSORIASIS
     Dosage: 300 MG, Q4W
     Route: 065
     Dates: start: 20180522
  2. COSENTYX [Suspect]
     Active Substance: SECUKINUMAB
     Indication: PSORIATIC ARTHROPATHY

REACTIONS (10)
  - Tonsillar disorder [Recovering/Resolving]
  - Chills [Recovering/Resolving]
  - Peritonsillar abscess [Recovering/Resolving]
  - Oropharyngeal pain [Recovering/Resolving]
  - Anaemia [Unknown]
  - Tonsillitis [Unknown]
  - Hereditary disorder [Unknown]
  - C-reactive protein increased [Unknown]
  - Pyrexia [Recovering/Resolving]
  - Psoriasis [Unknown]

NARRATIVE: CASE EVENT DATE: 20180813
